FAERS Safety Report 6187920-5 (Version None)
Quarter: 2009Q2

REPORT INFORMATION
  Report Type: 
  Country: None (occurrence: None)
  Receive Date: 20090511
  Receipt Date: 20090511
  Transmission Date: 20091009
  Serious: Yes (Hospitalization)
  Sender: FDA-Public Use
  Company Number: None

PATIENT
  Age: 53 Year
  Sex: Male
  Weight: 45.2 kg

DRUGS (2)
  1. CEFEPIME [Suspect]
     Indication: INFECTION
     Dosage: 2 GM OTHER IV
     Route: 042
     Dates: start: 20090422, end: 20090428
  2. METRONIDAZOLE [Suspect]
     Indication: INFECTION
     Dosage: 500 MG TID PO
     Route: 048
     Dates: start: 20090424, end: 20090429

REACTIONS (1)
  - CONVULSION [None]
